APPROVED DRUG PRODUCT: LIDOCAINE AND PRILOCAINE
Active Ingredient: LIDOCAINE; PRILOCAINE
Strength: 2.5%;2.5%
Dosage Form/Route: CREAM;TOPICAL
Application: A076453 | Product #001 | TE Code: AB
Applicant: FOUGERA PHARMACEUTICALS INC
Approved: Aug 18, 2003 | RLD: No | RS: Yes | Type: RX